FAERS Safety Report 5268582-8 (Version None)
Quarter: 2007Q1

REPORT INFORMATION
  Report Type: 
  Country: None (occurrence: None)
  Receive Date: 20070319
  Receipt Date: 20070313
  Transmission Date: 20070707
  Serious: Yes (Other)
  Sender: FDA-Public Use
  Company Number: CH-BRISTOL-MYERS SQUIBB COMPANY-13713979

PATIENT
  Age: 52 Year
  Sex: Female

DRUGS (3)
  1. REYATAZ [Suspect]
     Dates: start: 20041018
  2. VIDEX [Concomitant]
  3. NORVIR [Concomitant]

REACTIONS (2)
  - LIPOHYPERTROPHY [None]
  - WEIGHT INCREASED [None]
